FAERS Safety Report 5020448-4 (Version None)
Quarter: 2006Q2

REPORT INFORMATION
  Report Type: 
  Country: None (occurrence: None)
  Receive Date: 20060606
  Receipt Date: 20060601
  Transmission Date: 20061013
  Serious: Yes (Hospitalization)
  Sender: FDA-Public Use
  Company Number: 232957K06USA

PATIENT
  Age: 49 Year
  Sex: Female
  Weight: 68.0396 kg

DRUGS (5)
  1. REBIF [Suspect]
     Indication: MULTIPLE SCLEROSIS
     Dosage: 44 MCG, 3 IN 1 WEEKS, SUBCUTANEOUS
     Route: 058
     Dates: start: 20030101
  2. INSULIN (INSULIN / 00030501/) [Concomitant]
  3. DETROL [Concomitant]
  4. PREVACID [Suspect]
  5. NORVASC [Concomitant]

REACTIONS (2)
  - DRUG INEFFECTIVE [None]
  - INJECTION SITE INFECTION [None]
